FAERS Safety Report 17622286 (Version 3)
Quarter: 2020Q2

REPORT INFORMATION
  Report Type: Report from Study
  Country: US (occurrence: US)
  Receive Date: 20200403
  Receipt Date: 20200519
  Transmission Date: 20200713
  Serious: Yes (Other)
  Sender: FDA-Public Use
  Company Number: US-IPSEN BIOPHARMACEUTICALS, INC.-2020-06575

PATIENT
  Age: 55 Year
  Sex: Male
  Weight: 79.37 kg

DRUGS (6)
  1. SOMATULINE DEPOT [Suspect]
     Active Substance: LANREOTIDE ACETATE
     Indication: ACROMEGALY
     Route: 058
     Dates: start: 2011
  2. BUPROPION. [Concomitant]
     Active Substance: BUPROPION
  3. SOMATULINE DEPOT [Suspect]
     Active Substance: LANREOTIDE ACETATE
     Route: 058
  4. L-THYROXINE [Concomitant]
     Active Substance: LEVOTHYROXINE
  5. TESTOSTERONE CYPIONATE. [Concomitant]
     Active Substance: TESTOSTERONE CYPIONATE
     Dosage: 1 ML EVERY TWO WEEKS 200 MG/ML
  6. SOMATULINE DEPOT [Suspect]
     Active Substance: LANREOTIDE ACETATE
     Route: 058

REACTIONS (12)
  - Chronic leukaemia [Not Recovered/Not Resolved]
  - Insulin-like growth factor increased [Unknown]
  - Steatorrhoea [Unknown]
  - Faeces pale [Unknown]
  - Product dose omission [Unknown]
  - Abdominal pain upper [Recovering/Resolving]
  - Blood prolactin increased [Unknown]
  - Body height decreased [Not Recovered/Not Resolved]
  - Abdominal distension [Recovering/Resolving]
  - Diarrhoea [Recovering/Resolving]
  - Flatulence [Unknown]
  - Injection site mass [Not Recovered/Not Resolved]

NARRATIVE: CASE EVENT DATE: 201705
